FAERS Safety Report 7592313-X (Version None)
Quarter: 2011Q3

REPORT INFORMATION
  Report Type: 
  Country: None (occurrence: None)
  Receive Date: 20110706
  Receipt Date: 20110623
  Transmission Date: 20111222
  Serious: Yes (Other)
  Sender: FDA-Public Use
  Company Number: FR-JNJFOC-20110611523

PATIENT
  Age: 45 Year
  Sex: Male

DRUGS (2)
  1. REMICADE [Suspect]
     Route: 042
  2. REMICADE [Suspect]
     Indication: ANKYLOSING SPONDYLITIS
     Dosage: 3RD INFUSION
     Route: 042

REACTIONS (2)
  - RASH ERYTHEMATOUS [None]
  - PEMPHIGUS [None]
